FAERS Safety Report 7978407-5 (Version None)
Quarter: 2011Q4

REPORT INFORMATION
  Report Type: 
  Country: None (occurrence: None)
  Receive Date: 20111209
  Receipt Date: 20111205
  Transmission Date: 20120403
  Serious: Yes (Life-Threatening, Hospitalization, Other)
  Sender: FDA-Public Use
  Company Number: US-ZYDUS-000201

PATIENT
  Age: 81 Year
  Sex: Male

DRUGS (6)
  1. CEPHALEXIN [Concomitant]
  2. PREDNISONE TAB [Concomitant]
  3. AZATHIOPRINE [Suspect]
     Dosage: 100.00-MG-1.0DAYS
     Dates: start: 19820101
  4. STEROID [Concomitant]
  5. CEFTRIAXONE [Concomitant]
  6. VANCOMYCIN HYCHLORIDE [Concomitant]

REACTIONS (17)
  - MYALGIA [None]
  - ARTHRALGIA [None]
  - BLOOD CREATININE INCREASED [None]
  - CELLULITIS [None]
  - CHONDROCALCINOSIS PYROPHOSPHATE [None]
  - HISTOPLASMOSIS CUTANEOUS [None]
  - ASTHENIA [None]
  - HISTOPLASMOSIS DISSEMINATED [None]
  - PAIN IN EXTREMITY [None]
  - SEPSIS [None]
  - LUNG NEOPLASM [None]
  - HYPOTENSION [None]
  - PRODUCTIVE COUGH [None]
  - PYREXIA [None]
  - MOUTH ULCERATION [None]
  - JOINT EFFUSION [None]
  - OSTEOARTHRITIS [None]
